FAERS Safety Report 7770155-X (Version None)
Quarter: 2011Q3

REPORT INFORMATION
  Report Type: 
  Country: None (occurrence: None)
  Receive Date: 20110922
  Receipt Date: 20110428
  Transmission Date: 20111222
  Serious: No
  Sender: FDA-Public Use
  Company Number: US-ASTRAZENECA-2011SE24563

PATIENT
  Age: 46 Year
  Sex: Female

DRUGS (4)
  1. ZOLOFT [Concomitant]
  2. SEROQUEL XR [Suspect]
     Indication: BIPOLAR DISORDER
     Route: 048
  3. TRAZODONE HCL [Concomitant]
  4. XANAX [Concomitant]

REACTIONS (4)
  - DRUG DOSE OMISSION [None]
  - ANXIETY [None]
  - MOOD SWINGS [None]
  - ABNORMAL DREAMS [None]
